FAERS Safety Report 4613287-7 (Version None)
Quarter: 2005Q1

REPORT INFORMATION
  Report Type: 
  Country: None (occurrence: None)
  Receive Date: 20050315
  Receipt Date: 20040603
  Transmission Date: 20050727
  Serious: Yes (Disabling)
  Sender: FDA-Public Use
  Company Number: 8158

PATIENT
  Age: 72 Year
  Sex: Male

DRUGS (9)
  1. LEUCOVORIN [Suspect]
     Dosage: PO
     Route: 048
  2. FLUOROURACIL [Suspect]
     Indication: COLON CANCER
     Dosage: IV
     Route: 042
  3. UFT [Suspect]
     Indication: COLON CANCER
  4. FUROSEMIDE [Concomitant]
  5. LOSARTAN POTASSIUM [Concomitant]
  6. RILMENIDINE [Concomitant]
  7. CYCLOSPORINE [Concomitant]
  8. SERENOA REPENS [Concomitant]
  9. PRAVASTATIN [Concomitant]

REACTIONS (4)
  - ANGIOPATHY [None]
  - PYRAMIDAL TRACT SYNDROME [None]
  - UPPER MOTOR NEURONE LESION [None]
  - URINARY RETENTION [None]
